FAERS Safety Report 9705340 (Version 1)
Quarter: 2013Q4

REPORT INFORMATION
  Report Type: Spontaneous
  Country: FR (occurrence: FR)
  Receive Date: 20131122
  Receipt Date: 20131122
  Transmission Date: 20140711
  Serious: Yes (Hospitalization)
  Sender: FDA-Public Use
  Company Number: FR-SA-2013SA119055

PATIENT
  Age: 59 Year
  Sex: Female

DRUGS (5)
  1. TERALITHE [Suspect]
     Indication: BIPOLAR DISORDER
     Route: 048
  2. CISPLATIN [Interacting]
     Indication: SQUAMOUS CELL CARCINOMA
     Route: 042
     Dates: start: 20130117, end: 20130117
  3. TAXOTERE [Interacting]
     Indication: SQUAMOUS CELL CARCINOMA
     Route: 042
     Dates: start: 20130117, end: 20130117
  4. CIFLOX [Interacting]
     Indication: PRODUCT USED FOR UNKNOWN INDICATION
     Route: 048
     Dates: start: 20130122, end: 20130130
  5. 5 FU [Interacting]
     Indication: SQUAMOUS CELL CARCINOMA
     Route: 065
     Dates: start: 20130117, end: 20130121

REACTIONS (5)
  - Renal failure acute [Recovered/Resolved]
  - Blood creatinine increased [Recovered/Resolved]
  - Glomerular filtration rate decreased [Recovered/Resolved]
  - Antipsychotic drug level increased [Recovered/Resolved]
  - Drug interaction [Recovered/Resolved]
